FAERS Safety Report 4854000-8 (Version None)
Quarter: 2005Q4

REPORT INFORMATION
  Report Type: 
  Country: None (occurrence: None)
  Receive Date: 20051213
  Receipt Date: 20051129
  Transmission Date: 20060501
  Serious: Yes (Life-Threatening)
  Sender: FDA-Public Use
  Company Number: 2005S1010201

PATIENT
  Age: 52 Year
  Sex: Female
  Weight: 62.5964 kg

DRUGS (12)
  1. FENTANYL [Suspect]
     Indication: MUSCLE CONTRACTURE
     Dosage: 25 MCG/HR; Q3D; TRANS
     Route: 062
     Dates: start: 20050927, end: 20051016
  2. FENTANYL [Suspect]
     Indication: PAIN
     Dosage: 25 MCG/HR; Q3D; TRANS
     Route: 062
     Dates: start: 20050927, end: 20051016
  3. FENTANYL TRANSDERMAL SYSTEM [Suspect]
     Indication: MUSCLE CONTRACTURE
     Dosage: 50 MCG/HR; Q3D; TRANS
     Route: 062
     Dates: start: 20050927, end: 20051016
  4. FENTANYL TRANSDERMAL SYSTEM [Suspect]
     Indication: PAIN
     Dosage: 50 MCG/HR; Q3D; TRANS
     Route: 062
     Dates: start: 20050927, end: 20051016
  5. LEVETIRACETAM [Concomitant]
  6. TIZANIDINE HCL [Concomitant]
  7. ZIPRASIDONE HYDROCHLORIDE [Concomitant]
  8. BACLOFEN [Concomitant]
  9. DOCUSATE [Concomitant]
  10. MACROGOL [Concomitant]
  11. LANSOPRAZOLE [Concomitant]
  12. ONDANSETRON HYDROCHLORIDE [Concomitant]

REACTIONS (7)
  - CONVULSION [None]
  - DEPRESSED LEVEL OF CONSCIOUSNESS [None]
  - DRUG WITHDRAWAL SYNDROME [None]
  - HYPOVENTILATION [None]
  - INAPPROPRIATE SCHEDULE OF DRUG ADMINISTRATION [None]
  - LETHARGY [None]
  - WRONG TECHNIQUE IN DRUG USAGE PROCESS [None]
